FAERS Safety Report 7400443-8 (Version None)
Quarter: 2011Q2

REPORT INFORMATION
  Report Type: 
  Country: None (occurrence: None)
  Receive Date: 20110407
  Receipt Date: 20110221
  Transmission Date: 20111010
  Serious: Yes (Death, Hospitalization, Other)
  Sender: FDA-Public Use
  Company Number: US-BAXTER-2009BH017352

PATIENT
  Age: 51 Year
  Sex: Male
  Weight: 85 kg

DRUGS (12)
  1. SENSIPAR [Concomitant]
     Indication: PRODUCT USED FOR UNKNOWN INDICATION
     Route: 048
  2. HEPARIN SODIUM INJECTION [Suspect]
     Route: 065
  3. HEPARIN SODIUM INJECTION [Suspect]
     Indication: THROMBOSIS PROPHYLAXIS
     Route: 010
     Dates: start: 20070926, end: 20080201
  4. DILTIAZEM HCL [Concomitant]
     Indication: PRODUCT USED FOR UNKNOWN INDICATION
     Route: 065
  5. EPOGEN [Concomitant]
     Indication: PRODUCT USED FOR UNKNOWN INDICATION
     Route: 065
  6. LABETALOL [Concomitant]
     Indication: PRODUCT USED FOR UNKNOWN INDICATION
     Route: 065
  7. LASIX [Concomitant]
     Indication: PRODUCT USED FOR UNKNOWN INDICATION
     Route: 065
  8. HEPARIN SODIUM INJECTION [Suspect]
     Route: 065
  9. ANTIBIOTICS [Concomitant]
     Indication: PRODUCT USED FOR UNKNOWN INDICATION
     Route: 065
  10. IRON [Concomitant]
     Indication: PRODUCT USED FOR UNKNOWN INDICATION
     Route: 065
  11. GABAPENTIN [Concomitant]
     Indication: PRODUCT USED FOR UNKNOWN INDICATION
     Route: 048
  12. ALLOPURINOL [Concomitant]
     Indication: PRODUCT USED FOR UNKNOWN INDICATION
     Route: 065

REACTIONS (11)
  - MALAISE [None]
  - PERITONITIS [None]
  - DEATH [None]
  - CARDIAC DISORDER [None]
  - LIVER INJURY [None]
  - HYPOTENSION [None]
  - RENAL IMPAIRMENT [None]
  - ADVERSE EVENT [None]
  - MIGRAINE [None]
  - CARDIAC FAILURE CONGESTIVE [None]
  - HEADACHE [None]
